FAERS Safety Report 4426167-7 (Version None)
Quarter: 2004Q3

REPORT INFORMATION
  Report Type: 
  Country: None (occurrence: None)
  Receive Date: 20040811
  Receipt Date: 20040726
  Transmission Date: 20050211
  Serious: Yes (Other)
  Sender: FDA-Public Use
  Company Number: USA040465685

PATIENT
  Age: 41 Year
  Sex: Male

DRUGS (2)
  1. ZYPREXA [Suspect]
     Dosage: 7.5 MG DAY
     Dates: start: 20030101
  2. LEXAPRO [Concomitant]

REACTIONS (9)
  - CARDIOMYOPATHY [None]
  - CHEST DISCOMFORT [None]
  - COUGH [None]
  - DYSPNOEA [None]
  - DYSPNOEA EXERTIONAL [None]
  - HYPOXIA [None]
  - PERICARDIAL EFFUSION [None]
  - PERICARDITIS [None]
  - VENTRICULAR HYPERTROPHY [None]
